FAERS Safety Report 7965349-4 (Version None)
Quarter: 2011Q4

REPORT INFORMATION
  Report Type: 
  Country: None (occurrence: None)
  Receive Date: 20111208
  Receipt Date: 20111130
  Transmission Date: 20120403
  Serious: Yes (Other)
  Sender: FDA-Public Use
  Company Number: PHHY2011AR104956

PATIENT
  Sex: Male

DRUGS (1)
  1. EXELON [Suspect]
     Indication: MEMORY IMPAIRMENT
     Dosage: 4.6 MG, 1 PATCH DAILY
     Route: 062
     Dates: start: 20110617, end: 20110703

REACTIONS (5)
  - DIZZINESS [None]
  - DYSURIA [None]
  - URINARY INCONTINENCE [None]
  - MOOD ALTERED [None]
  - PROSTATOMEGALY [None]
